FAERS Safety Report 10262931 (Version 2)
Quarter: 2014Q2

REPORT INFORMATION
  Report Type: Report from Study
  Country: US (occurrence: US)
  Receive Date: 20140626
  Receipt Date: 20140626
  Transmission Date: 20141212
  Serious: Yes (Other)
  Sender: FDA-Public Use
  Company Number: US-MYLANLABS-2013S1023204

PATIENT
  Age: 63 Year
  Sex: Male

DRUGS (9)
  1. CLOZAPINE TABLETS [Suspect]
     Route: 048
     Dates: start: 20130929, end: 20130929
  2. CLOZAPINE TABLETS [Suspect]
     Route: 048
     Dates: start: 20130930, end: 20131011
  3. ATORVASTATIN [Concomitant]
     Route: 048
  4. LEVOTHYROXINE [Concomitant]
     Route: 048
  5. MIRTAZAPINE [Concomitant]
     Route: 048
  6. OLANZAPINE [Concomitant]
     Route: 048
  7. MIRALAX /00754501/ [Concomitant]
     Route: 048
  8. RANITIDINE [Concomitant]
     Route: 048
  9. TERAZOSIN [Concomitant]
     Route: 048

REACTIONS (2)
  - Granulocytopenia [Recovered/Resolved]
  - Leukopenia [Recovered/Resolved]
